FAERS Safety Report 5358486-4 (Version None)
Quarter: 2007Q2

REPORT INFORMATION
  Report Type: 
  Country: None (occurrence: None)
  Receive Date: 20070614
  Receipt Date: 20070614
  Transmission Date: 20071010
  Serious: Yes (Death)
  Sender: FDA-Public Use
  Company Number: None

PATIENT
  Age: 47 Year
  Sex: Male
  Weight: 90.4926 kg

DRUGS (2)
  1. HALOPERIDOL [Suspect]
     Indication: PSYCHOTIC DISORDER
     Dates: start: 20070523, end: 20070605
  2. BENZTROPINE [Suspect]
     Dates: start: 20070523, end: 20070605

REACTIONS (9)
  - AGITATION [None]
  - BLOOD PRESSURE DECREASED [None]
  - BODY TEMPERATURE INCREASED [None]
  - BRADYCARDIA [None]
  - CONVULSION [None]
  - CYANOSIS [None]
  - INCOHERENT [None]
  - OXYGEN SATURATION DECREASED [None]
  - RESPIRATORY ARREST [None]
